FAERS Safety Report 5561557-0 (Version None)
Quarter: 2007Q4

REPORT INFORMATION
  Report Type: 
  Country: None (occurrence: None)
  Receive Date: 20071215
  Receipt Date: 20071017
  Transmission Date: 20080405
  Serious: No
  Sender: FDA-Public Use
  Company Number: US-AMGEN-KDL247813

PATIENT
  Sex: Female
  Weight: 86.3 kg

DRUGS (7)
  1. ENBREL [Suspect]
     Indication: RHEUMATOID ARTHRITIS
     Route: 058
     Dates: start: 20000101
  2. SYNTHROID [Concomitant]
  3. TRILEPTAL [Concomitant]
  4. BACLOFEN [Concomitant]
  5. XANAX [Concomitant]
  6. TYLENOL (CAPLET) [Concomitant]
  7. MOBIC [Concomitant]

REACTIONS (4)
  - CHEST PAIN [None]
  - FOOT OPERATION [None]
  - RHEUMATOID ARTHRITIS [None]
  - SINUSITIS [None]
